FAERS Safety Report 5717647-2 (Version None)
Quarter: 2008Q2

REPORT INFORMATION
  Report Type: 
  Country: None (occurrence: None)
  Receive Date: 20080425
  Receipt Date: 20080417
  Transmission Date: 20081010
  Serious: Yes (Other)
  Sender: FDA-Public Use
  Company Number: US-ROCHE-559567

PATIENT
  Age: 52 Year
  Sex: Male

DRUGS (15)
  1. BONIVA [Suspect]
     Indication: OSTEOPOROSIS
     Route: 065
  2. MORPHINE [Concomitant]
  3. INSULIN [Concomitant]
  4. LANTUS [Concomitant]
  5. FLOMAX [Concomitant]
  6. FLOMAX [Concomitant]
  7. CASODEX [Concomitant]
  8. PREVACID [Concomitant]
  9. PREVACID [Concomitant]
  10. PRAVACHOL [Concomitant]
  11. CORTISONE ACETATE [Concomitant]
  12. LYRICA [Concomitant]
  13. CALCIUM NOS [Concomitant]
  14. VITAMIN B-12 [Concomitant]
  15. METFORMIN HCL [Concomitant]

REACTIONS (1)
  - SPINAL FRACTURE [None]
